FAERS Safety Report 7963827-5 (Version None)
Quarter: 2011Q4

REPORT INFORMATION
  Report Type: 
  Country: None (occurrence: None)
  Receive Date: 20111208
  Receipt Date: 20111202
  Transmission Date: 20120403
  Serious: Yes (Death)
  Sender: FDA-Public Use
  Company Number: JP-BAYER-2011-100527

PATIENT
  Age: 81 Year
  Sex: Male
  Weight: 51 kg

DRUGS (8)
  1. NEXAVAR [Suspect]
     Indication: HEPATIC NEOPLASM MALIGNANT
     Dosage: 200 MG, BID
     Route: 048
     Dates: start: 20110408
  2. GLIMEPIRIDE [Concomitant]
     Dosage: DAILY DOSE 1 MG
     Route: 048
     Dates: start: 20051217, end: 20111015
  3. AMLODIPINE [Concomitant]
     Dosage: DAILY DOSE 5 MG
     Route: 048
     Dates: start: 20081128, end: 20111015
  4. FUROSEMIDE [Concomitant]
     Dosage: DAILY DOSE 40 MG
     Route: 048
     Dates: start: 20100120, end: 20111015
  5. ROXATIDINE ACETATE HCL [Concomitant]
     Dosage: DAILY DOSE 150 MG
     Route: 048
     Dates: start: 20051217, end: 20111015
  6. URSO 250 [Concomitant]
     Dosage: DAILY DOSE 600 MG
     Route: 048
     Dates: start: 20051217, end: 20111015
  7. CETIRIZINE HCL [Concomitant]
     Dosage: DAILY DOSE 10 MG
     Route: 048
     Dates: start: 20100220, end: 20111015
  8. ALDACTONE [Concomitant]
     Dosage: DAILY DOSE 25 MG
     Route: 048
     Dates: start: 20100120, end: 20111015

REACTIONS (5)
  - CEREBRAL INFARCTION [None]
  - MIOSIS [None]
  - CARDIO-RESPIRATORY ARREST [None]
  - PYREXIA [None]
  - LOSS OF CONSCIOUSNESS [None]
